FAERS Safety Report 9862053 (Version 1)
Quarter: 2014Q1

REPORT INFORMATION
  Report Type: Spontaneous
  Country: US (occurrence: US)
  Receive Date: 20140203
  Receipt Date: 20140203
  Transmission Date: 20141002
  Serious: No
  Sender: FDA-Public Use
  Company Number: US-TEVA-459866USA

PATIENT
  Age: 22 Year
  Sex: Female
  Weight: 55.39 kg

DRUGS (2)
  1. PARAGARD 380A [Suspect]
     Indication: CONTRACEPTION
     Route: 015
     Dates: start: 20140129, end: 20140129
  2. MIDODRINE [Concomitant]
     Indication: PRODUCT USED FOR UNKNOWN INDICATION

REACTIONS (3)
  - Nausea [Recovered/Resolved]
  - Dizziness [Recovered/Resolved]
  - Pelvic pain [Recovered/Resolved]
